FAERS Safety Report 5093411-5 (Version None)
Quarter: 2006Q3

REPORT INFORMATION
  Report Type: 
  Country: None (occurrence: None)
  Receive Date: 20060828
  Receipt Date: 20060809
  Transmission Date: 20061208
  Serious: Yes (Death, Hospitalization)
  Sender: FDA-Public Use
  Company Number: 2006001458

PATIENT
  Age: 83 Year
  Sex: Male

DRUGS (1)
  1. TARCEVA [Suspect]
     Indication: NON-SMALL CELL LUNG CANCER
     Dosage: 150 MG (QD), ORAL
     Route: 048
     Dates: start: 20060502, end: 20060628

REACTIONS (6)
  - ACUTE MYOCARDIAL INFARCTION [None]
  - HYPOTENSION [None]
  - INFECTION [None]
  - RASH [None]
  - SEPSIS [None]
  - SKIN LESION [None]
